FAERS Safety Report 9320930 (Version 1)
Quarter: 2013Q2

REPORT INFORMATION
  Report Type: Report from Study
  Country: JP (occurrence: JP)
  Receive Date: 20130531
  Receipt Date: 20130531
  Transmission Date: 20140414
  Serious: Yes (Hospitalization, Other)
  Sender: FDA-Public Use
  Company Number: PHHY2013JP053498

PATIENT
  Age: 42 Year
  Sex: Female

DRUGS (34)
  1. ICL670A [Suspect]
     Indication: APLASTIC ANAEMIA
     Dosage: 1250 MG, DAILY
     Route: 048
     Dates: start: 20100212, end: 20100609
  2. ICL670A [Suspect]
     Dosage: 1250 MG, DAILY
     Route: 048
     Dates: start: 20100714, end: 20110209
  3. ICL670A [Suspect]
     Dosage: 625 MG, DAILY
     Route: 048
     Dates: start: 20110210, end: 20110920
  4. ICL670A [Suspect]
     Dosage: 875 MG, DAILY
     Route: 048
     Dates: start: 20110921, end: 20120228
  5. ICL670A [Suspect]
     Dosage: 1000 MG, DAILY
     Route: 048
     Dates: start: 20120229, end: 20121002
  6. ICL670A [Suspect]
     Dosage: 1125 MG, DAILY
     Route: 048
     Dates: start: 20121003
  7. LEUPLIN [Suspect]
     Indication: PROPHYLAXIS
     Dosage: 1.88 MG, DAILY
     Dates: end: 20110119
  8. LEUPLIN [Suspect]
     Dosage: 1.88 MG, DAILY
     Dates: start: 20110216, end: 20110216
  9. TAMIFLU [Concomitant]
     Indication: PROPHYLAXIS
     Dosage: 150 MG, UNK
     Route: 048
     Dates: start: 20120323, end: 20120324
  10. PURSENNID                               /SCH/ [Concomitant]
     Indication: PROPHYLAXIS
     Dosage: 24 MG, UNK
     Route: 048
     Dates: start: 20120328, end: 20120403
  11. SELBEX [Concomitant]
     Indication: PROPHYLAXIS
     Dosage: 150 MG, UNK
     Route: 048
     Dates: start: 20100812
  12. SELBEX [Concomitant]
     Dosage: 150 MG, UNK
     Route: 048
     Dates: end: 20121127
  13. ADONA [Concomitant]
     Indication: PROPHYLAXIS
     Dosage: 90 MG, UNK
     Route: 048
     Dates: start: 20100812
  14. ADONA [Concomitant]
     Dosage: 90 MG, UNK
     Route: 048
     Dates: end: 20130214
  15. TRANSAMIN [Concomitant]
     Indication: PROPHYLAXIS
     Dosage: 1.5 MG, UNK
     Route: 048
     Dates: start: 20100812
  16. TRANSAMIN [Concomitant]
     Dosage: 1.5 MG, UNK
     Route: 048
     Dates: end: 20130214
  17. NEUTROGIN [Concomitant]
     Indication: IRON OVERLOAD
     Dosage: 100 UG, UNK
     Dates: start: 20100818
  18. NEUTROGIN [Concomitant]
     Dosage: 100 UG, UNK
  19. NEUTROGIN [Concomitant]
     Dosage: 100 UG, UNK
  20. NEUTROGIN [Concomitant]
     Dosage: 250 UNK, UNK
     Dates: end: 20130213
  21. SOLU-CORTEF [Concomitant]
     Indication: PROPHYLAXIS
     Dosage: 100 MG, UNK
     Dates: start: 20100818
  22. SOLU-CORTEF [Concomitant]
     Dosage: 100 MG, UNK
  23. SOLU-CORTEF [Concomitant]
     Dosage: 50 MG, UNK
  24. SOLU-CORTEF [Concomitant]
     Dosage: 50 MG, UNK
     Dates: end: 20121114
  25. FLOMOX [Concomitant]
     Indication: PROPHYLAXIS
     Dosage: 300 MG, UNK
     Dates: start: 20120201, end: 20120205
  26. FLUMARIN [Concomitant]
     Indication: PROPHYLAXIS
     Dosage: 1 G, UNK
     Dates: start: 20120202, end: 20120202
  27. TAKEPRON [Concomitant]
     Indication: PROPHYLAXIS
     Dosage: 15 MG, UNK
     Route: 048
     Dates: start: 20121128, end: 20130214
  28. ATARAX-P [Concomitant]
     Indication: PROPHYLAXIS
     Dosage: 25 MG, UNK
     Dates: start: 20121031
  29. ATARAX-P [Concomitant]
     Dosage: 12.5 MG, UNK
     Dates: end: 20130128
  30. CONCENTRATED RED CELLS [Concomitant]
     Dosage: 2 U EVERY WEEK
     Dates: start: 20100212, end: 20110209
  31. CONCENTRATED RED CELLS [Concomitant]
     Dosage: 2 U EVERY WEEK
     Dates: start: 20110223, end: 20120209
  32. CONCENTRATED RED CELLS [Concomitant]
     Dosage: 2 U EVERY WEEK
     Dates: start: 20120222, end: 20130208
  33. PLATELETS, CONCENTRATED [Concomitant]
     Dosage: 10 U, EVERY WEEK
     Dates: start: 20100303, end: 20121121
  34. PLATELETS, CONCENTRATED [Concomitant]
     Dosage: 10 U, EVERY 0.5 WEEK
     Dates: start: 20021128, end: 20130212

REACTIONS (7)
  - Sinusitis [Recovered/Resolved]
  - Pyrexia [Recovered/Resolved]
  - Menorrhagia [Recovered/Resolved]
  - Aplastic anaemia [Unknown]
  - Condition aggravated [Unknown]
  - Blood alkaline phosphatase increased [Recovered/Resolved]
  - Haematochezia [Recovered/Resolved]
